FAERS Safety Report 7541957-X (Version None)
Quarter: 2011Q2

REPORT INFORMATION
  Report Type: 
  Country: None (occurrence: None)
  Receive Date: 20110613
  Receipt Date: 20110605
  Transmission Date: 20111010
  Serious: Yes (Death)
  Sender: FDA-Public Use
  Company Number: US-CELGENEUS-163-21880-11060727

PATIENT
  Age: 83 Year
  Sex: Male

DRUGS (4)
  1. BISPHOSPHONATE [Concomitant]
     Route: 065
  2. ASPIRIN [Concomitant]
     Route: 065
  3. REVLIMID [Suspect]
     Dosage: 5 MILLIGRAM
     Route: 048
     Dates: start: 20100205, end: 20110302
  4. DEXAMETHASONE [Concomitant]
     Dosage: LOW DOSE
     Route: 065
     Dates: start: 20100205, end: 20110302

REACTIONS (1)
  - DEATH [None]
